FAERS Safety Report 25486154 (Version 1)
Quarter: 2025Q2

REPORT INFORMATION
  Report Type: Spontaneous
  Country: FR (occurrence: FR)
  Receive Date: 20250626
  Receipt Date: 20250626
  Transmission Date: 20250716
  Serious: Yes (Hospitalization)
  Sender: ABBVIE
  Company Number: FR-ABBVIE-6341135

PATIENT
  Age: 71 Year
  Sex: Male

DRUGS (2)
  1. CARBIDOPA\LEVODOPA [Suspect]
     Active Substance: CARBIDOPA\LEVODOPA
     Indication: Parkinson^s disease
     Route: 050
     Dates: start: 202505, end: 20250622
  2. CARBIDOPA\LEVODOPA [Suspect]
     Active Substance: CARBIDOPA\LEVODOPA

REACTIONS (7)
  - Off label use [Unknown]
  - Device breakage [Unknown]
  - Device dislocation [Unknown]
  - Cognitive disorder [Unknown]
  - Paranoia [Unknown]
  - Unevaluable event [Unknown]
  - Device placement issue [Unknown]

NARRATIVE: CASE EVENT DATE: 20250101
